FAERS Safety Report 25080378 (Version 1)
Quarter: 2025Q1

REPORT INFORMATION
  Report Type: Spontaneous
  Country: IT (occurrence: IT)
  Receive Date: 20250315
  Receipt Date: 20250315
  Transmission Date: 20250408
  Serious: Yes (Hospitalization, Other)
  Sender: ABBVIE
  Company Number: IT-ABBVIE-6170054

PATIENT
  Sex: Female

DRUGS (6)
  1. SKYRIZI [Suspect]
     Active Substance: RISANKIZUMAB-RZAA
     Indication: Crohn^s disease
     Dosage: 360MG EVERY 8 WEEKS
     Route: 058
     Dates: start: 20240628, end: 20250110
  2. LANSOPRAZOLE [Concomitant]
     Active Substance: LANSOPRAZOLE
     Indication: Product used for unknown indication
  3. MAGNESIUM [Concomitant]
     Active Substance: MAGNESIUM
     Indication: Blood magnesium increased
  4. Riopan [Concomitant]
     Indication: Dyspepsia
  5. BISOPROLOL [Concomitant]
     Active Substance: BISOPROLOL
     Indication: Cardiac disorder
  6. Sodioral con inulina [Concomitant]
     Indication: Supplementation therapy

REACTIONS (3)
  - Gastric neoplasm [Not Recovered/Not Resolved]
  - Tooth fracture [Not Recovered/Not Resolved]
  - Device breakage [Not Recovered/Not Resolved]
